FAERS Safety Report 4864878-X (Version None)
Quarter: 2005Q4

REPORT INFORMATION
  Report Type: 
  Country: None (occurrence: None)
  Receive Date: 20051201
  Receipt Date: 20050811
  Transmission Date: 20060501
  Serious: No
  Sender: FDA-Public Use
  Company Number: 2005PV001099

PATIENT
  Age: 53 Year
  Sex: Female
  Weight: 72.5755 kg

DRUGS (9)
  1. BYETTA [Suspect]
     Indication: DIABETES MELLITUS NON-INSULIN-DEPENDENT
     Dosage: 5 MCG; BID; SC; 5 MCG; BID; SC
     Route: 058
     Dates: start: 20050713, end: 20050806
  2. BYETTA [Suspect]
     Indication: DIABETES MELLITUS NON-INSULIN-DEPENDENT
     Dosage: 5 MCG; BID; SC; 5 MCG; BID; SC
     Route: 058
     Dates: start: 20050808
  3. AMARYL [Concomitant]
  4. AVANDIA [Concomitant]
  5. METFORMIN [Concomitant]
  6. AVACAN [Concomitant]
  7. TOPROL-XL [Concomitant]
  8. CLARITIN [Concomitant]
  9. NEXIUM [Concomitant]

REACTIONS (3)
  - INJECTION SITE BRUISING [None]
  - POST PROCEDURAL COMPLICATION [None]
  - VOMITING [None]
